FAERS Safety Report 7106254-5 (Version None)
Quarter: 2010Q4

REPORT INFORMATION
  Report Type: 
  Country: None (occurrence: None)
  Receive Date: 20101116
  Receipt Date: 20101022
  Transmission Date: 20110411
  Serious: Yes (Other)
  Sender: FDA-Public Use
  Company Number: CO-AMGEN-COLCT2010001619

PATIENT

DRUGS (8)
  1. ETANERCEPT [Suspect]
     Indication: RHEUMATOID ARTHRITIS
     Dosage: 50 MG, QWK
     Dates: start: 20050902
  2. ARAVA [Concomitant]
     Dosage: UNK UNK, UNK
  3. GOLD [Concomitant]
     Indication: PAIN
     Dosage: UNKNOWN
     Dates: start: 20030101
  4. GOLD [Concomitant]
     Indication: SWELLING
  5. DICLOFENAC SODIUM [Concomitant]
     Indication: PAIN
     Dosage: UNKNOWN
     Dates: start: 20000101, end: 20070101
  6. DICLOFENAC SODIUM [Concomitant]
     Indication: SWELLING
  7. PREDNISOLONE [Concomitant]
  8. PREDNISOLONE [Concomitant]

REACTIONS (2)
  - BLINDNESS [None]
  - EYE PAIN [None]
